FAERS Safety Report 15917435 (Version 1)
Quarter: 2019Q1

REPORT INFORMATION
  Report Type: Spontaneous
  Country: DE (occurrence: DE)
  Receive Date: 20190205
  Receipt Date: 20190205
  Transmission Date: 20190417
  Serious: Yes (Other)
  Sender: FDA-Public Use
  Company Number: DE-AUROBINDO-AUR-APL-2018-062602

PATIENT

DRUGS (3)
  1. PIOGLITAZONE. [Suspect]
     Active Substance: PIOGLITAZONE
     Indication: LEUKAEMIA CUTIS
     Dosage: 45 MILLIGRAM, ONCE A DAY, 45 MG/DAY PER OS
     Route: 048
  2. TRETINOIN. [Suspect]
     Active Substance: TRETINOIN
     Indication: LEUKAEMIA CUTIS
     Dosage: 45 MILLIGRAM/SQ. METER, ONCE A DAY, 45 MG/M^2/DAY PER OS
     Route: 048
  3. AZACITIDINE. [Suspect]
     Active Substance: AZACITIDINE
     Indication: LEUKAEMIA CUTIS
     Dosage: 75 MG/DAY (GIVEN SC D1-7 OF 28)
     Route: 058

REACTIONS (4)
  - Anaemia [Unknown]
  - Platelet count decreased [Unknown]
  - White blood cell count decreased [Unknown]
  - Product use in unapproved indication [Unknown]
